FAERS Safety Report 22906413 (Version 4)
Quarter: 2024Q2

REPORT INFORMATION
  Report Type: Report from Study
  Country: DE (occurrence: DE)
  Receive Date: 20230905
  Receipt Date: 20240628
  Transmission Date: 20240715
  Serious: Yes (Hospitalization)
  Sender: FDA-Public Use
  Company Number: DE-PHARMAESSENTIA-DE-2023-PEC-001950

PATIENT
  Age: 65 Year
  Sex: Female

DRUGS (19)
  1. BESREMI [Suspect]
     Active Substance: ROPEGINTERFERON ALFA-2B-NJFT
     Indication: Polycythaemia vera
     Dosage: 50 MCG, Q2W
     Route: 058
     Dates: start: 20220128, end: 20220204
  2. BESREMI [Suspect]
     Active Substance: ROPEGINTERFERON ALFA-2B-NJFT
     Dosage: 100 MCG, Q2W
     Route: 058
     Dates: start: 20220204, end: 20220318
  3. BESREMI [Suspect]
     Active Substance: ROPEGINTERFERON ALFA-2B-NJFT
     Dosage: 150 MCG, Q2W
     Route: 058
     Dates: start: 20220318, end: 20220826
  4. BESREMI [Suspect]
     Active Substance: ROPEGINTERFERON ALFA-2B-NJFT
     Dosage: 200 MCG, Q2W
     Route: 058
     Dates: start: 20220826, end: 20230313
  5. BESREMI [Suspect]
     Active Substance: ROPEGINTERFERON ALFA-2B-NJFT
     Dosage: 200 MCG, Q2W
     Route: 058
     Dates: start: 20230331, end: 20230705
  6. BESREMI [Suspect]
     Active Substance: ROPEGINTERFERON ALFA-2B-NJFT
     Dosage: 250 MCG, Q2W
     Route: 058
     Dates: start: 20230705
  7. ASPIRIN [Concomitant]
     Active Substance: ASPIRIN
     Indication: Anticoagulant therapy
     Dosage: 100 MILLIGRAM, QD
     Route: 048
  8. ASPIRIN [Concomitant]
     Active Substance: ASPIRIN
     Indication: Prophylaxis
  9. BISOPROLOL [Concomitant]
     Active Substance: BISOPROLOL\BISOPROLOL FUMARATE
     Indication: Hypertension
     Dosage: 7.5 MILLIGRAM, QD
     Route: 048
  10. AMLODIPINE [Concomitant]
     Active Substance: AMLODIPINE BESYLATE
     Indication: Hypertension
     Dosage: 5 MILLIGRAM, QD
     Route: 048
  11. HYDROCHLOROTHIAZIDE [Concomitant]
     Active Substance: HYDROCHLOROTHIAZIDE
     Indication: Hypertension
     Dosage: 12.5 MILLIGRAM, QD
     Route: 048
  12. HYDROXYUREA [Concomitant]
     Active Substance: HYDROXYUREA
     Indication: Polycythaemia vera
     Dosage: ALTERNATING WITH 1000 MG.DISCONTINUED DUE TO LACK OF EFFICACY.
     Route: 048
     Dates: start: 201412, end: 20220204
  13. HYDROXYUREA [Concomitant]
     Active Substance: HYDROXYUREA
     Dosage: ALTERNATING WITH 1500 MG.DISCONTINUED DUE TO LACK OF EFFICACY.
     Route: 048
     Dates: start: 201412, end: 20220204
  14. HYDROXYUREA [Concomitant]
     Active Substance: HYDROXYUREA
     Dosage: DISCONTINUED DUE TO LACK OF EFFICACY.
     Route: 048
     Dates: start: 20220205, end: 20220304
  15. HYDROXYUREA [Concomitant]
     Active Substance: HYDROXYUREA
     Dosage: TAKEN EVERY OTHER DAY.
     Route: 048
     Dates: start: 20220305, end: 20220318
  16. HYDROXYUREA [Concomitant]
     Active Substance: HYDROXYUREA
     Dosage: 500 MILLIGRAM, QD
     Route: 048
     Dates: start: 20220319, end: 20220613
  17. HYDROXYUREA [Concomitant]
     Active Substance: HYDROXYUREA
     Dosage: TAKEN ON MON/WED/FRIDISCONTINUED UPON DOCTOR^S CHOICE.
     Route: 048
     Dates: start: 20220614, end: 20220715
  18. HYDROXYUREA [Concomitant]
     Active Substance: HYDROXYUREA
     Dosage: TAKEN ON MONDAY AND FRIDAY
     Route: 048
     Dates: start: 20230716
  19. CYCLOSPORINE [Concomitant]
     Active Substance: CYCLOSPORINE
     Indication: Dry eye
     Dosage: 1 MG, QD (EACH DAY)
     Route: 061
     Dates: start: 20221031

REACTIONS (1)
  - Herpes zoster [Recovered/Resolved]

NARRATIVE: CASE EVENT DATE: 20230306
